FAERS Safety Report 6217074-8 (Version None)
Quarter: 2009Q2

REPORT INFORMATION
  Report Type: 
  Country: None (occurrence: None)
  Receive Date: 20090606
  Receipt Date: 20090528
  Transmission Date: 20091009
  Serious: Yes (Other)
  Sender: FDA-Public Use
  Company Number: US-PFIZER INC-2006039981

PATIENT
  Sex: Female
  Weight: 53 kg

DRUGS (10)
  1. PROVERA [Suspect]
     Indication: HORMONE REPLACEMENT THERAPY
     Dosage: UNK
     Route: 048
     Dates: start: 19900827, end: 19990101
  2. PROVERA [Suspect]
     Indication: MENOPAUSE
  3. PREMARIN [Suspect]
     Indication: HORMONE REPLACEMENT THERAPY
     Dosage: UNKNWON
     Dates: start: 19690101, end: 19990101
  4. PREMARIN [Suspect]
     Indication: MENOPAUSE
  5. MEDROXYPROGESTERONE [Suspect]
     Indication: HORMONE REPLACEMENT THERAPY
     Dosage: UNK
     Dates: start: 19980101
  6. MEDROXYPROGESTERONE [Suspect]
     Indication: MENOPAUSE
  7. ALTACE [Concomitant]
     Dosage: UNK
     Route: 065
     Dates: start: 19980701
  8. DIGOXIN [Concomitant]
     Indication: CARDIAC FAILURE
     Dosage: UNK
     Dates: start: 19980601
  9. KLOR-CON [Concomitant]
     Indication: BLOOD POTASSIUM
     Dosage: UNK
     Dates: start: 19980601
  10. LASIX [Concomitant]
     Indication: DIURETIC THERAPY
     Dosage: UNK
     Dates: start: 19980601

REACTIONS (1)
  - BREAST CANCER [None]
